FAERS Safety Report 7741388-3 (Version None)
Quarter: 2011Q3

REPORT INFORMATION
  Report Type: 
  Country: None (occurrence: None)
  Receive Date: 20110909
  Receipt Date: 20110907
  Transmission Date: 20111222
  Serious: Yes (Death)
  Sender: FDA-Public Use
  Company Number: PHHY2010NL87105

PATIENT
  Sex: Female
  Weight: 50.5 kg

DRUGS (9)
  1. ACETYLSALICYLIC ACID SRT [Concomitant]
  2. CALCI [Concomitant]
  3. SANDOSTATIN LAR [Suspect]
     Dosage: 30 MG, EVERY 4 WEEKS
     Dates: start: 20080226
  4. LOPERAMIDE HCL [Concomitant]
  5. THYRAX [Concomitant]
  6. SANDOSTATIN LAR [Suspect]
     Indication: CARCINOID TUMOUR
     Dosage: 20 MG, ONCE WEEKLY
     Dates: start: 20070101
  7. ACETAMINOPHEN [Concomitant]
  8. SANDOSTATIN LAR [Suspect]
     Dosage: 30 MG, EVERY 4 WEEKS
     Dates: start: 20100907
  9. MOVICOLON [Concomitant]

REACTIONS (6)
  - INFECTIOUS PERITONITIS [None]
  - MECHANICAL ILEUS [None]
  - MEGACOLON [None]
  - SEPSIS [None]
  - C-REACTIVE PROTEIN INCREASED [None]
  - NEOPLASM MALIGNANT [None]
